FAERS Safety Report 12499491 (Version 3)
Quarter: 2020Q3

REPORT INFORMATION
  Report Type: Report from Study
  Country: CO (occurrence: CO)
  Receive Date: 20160627
  Receipt Date: 20160906
  Transmission Date: 20201105
  Serious: Yes (Hospitalization, Disabling)
  Sender: FDA-Public Use
  Company Number: PHHY2016CO087212

PATIENT
  Age: 52 Year
  Sex: Female
  Weight: 46 kg

DRUGS (7)
  1. PREGABALIN. [Concomitant]
     Active Substance: PREGABALIN
     Indication: NEUROPATHY PERIPHERAL
     Dosage: 75 MG, QD (EVERY EVENING)
     Route: 048
  2. AFINITOR [Interacting]
     Active Substance: EVEROLIMUS
     Dosage: 10 MG, QD
     Route: 048
     Dates: end: 20160817
  3. IBANDRONIC ACID. [Interacting]
     Active Substance: IBANDRONIC ACID
     Indication: PRODUCT USED FOR UNKNOWN INDICATION
     Dosage: UNK UNK, QMO (ONCE A MONTH)
     Route: 042
  4. AFINITOR [Suspect]
     Active Substance: EVEROLIMUS
     Indication: BREAST CANCER METASTATIC
     Dosage: 10 MG, QD
     Route: 048
     Dates: start: 20160424, end: 201605
  5. AROMASIN [Concomitant]
     Active Substance: EXEMESTANE
     Indication: BREAST CANCER METASTATIC
     Dosage: 25 MG, QD
     Route: 048
  6. PREDNISOLONE. [Concomitant]
     Active Substance: PREDNISOLONE
     Indication: PAIN
     Dosage: 1 DF, Q12H (EVERY 12 HOURS)
     Route: 048
  7. ACETAMINOPHEN. [Concomitant]
     Active Substance: ACETAMINOPHEN
     Indication: PAIN
     Dosage: 2 DF, Q8H (EVERY 8 HOURS)
     Route: 048

REACTIONS (13)
  - Rash [Unknown]
  - Blister infected [Unknown]
  - Mobility decreased [Unknown]
  - Blister [Unknown]
  - Decreased immune responsiveness [Unknown]
  - Pruritus [Unknown]
  - Burning sensation [Unknown]
  - Arthralgia [Unknown]
  - Miliaria [Unknown]
  - Herpes zoster [Unknown]
  - Pyrexia [Unknown]
  - Bone pain [Unknown]
  - Drug interaction [Unknown]

NARRATIVE: CASE EVENT DATE: 201605
